FAERS Safety Report 5477826-9 (Version None)
Quarter: 2007Q4

REPORT INFORMATION
  Report Type: 
  Country: None (occurrence: None)
  Receive Date: 20071004
  Receipt Date: 20070925
  Transmission Date: 20080405
  Serious: Yes (Other)
  Sender: FDA-Public Use
  Company Number: JP-MERCK-0709USA02638

PATIENT
  Age: 80 Year
  Sex: Male

DRUGS (7)
  1. ZETIA [Suspect]
     Indication: HYPERCHOLESTEROLAEMIA
     Route: 048
     Dates: start: 20070821, end: 20070904
  2. ASPIRIN [Concomitant]
     Indication: HYPERCHOLESTEROLAEMIA
     Route: 065
     Dates: start: 20050913
  3. AMLODIPINE BESYLATE [Concomitant]
     Route: 065
     Dates: start: 20050913
  4. BENZBROMARONE [Concomitant]
     Route: 065
     Dates: start: 20050913
  5. VALSARTAN [Concomitant]
     Route: 065
     Dates: start: 20050913
  6. AST-120 [Concomitant]
     Route: 065
     Dates: start: 20050913
  7. MAGNESIUM OXIDE [Concomitant]
     Route: 065
     Dates: start: 20050913

REACTIONS (3)
  - ALANINE AMINOTRANSFERASE INCREASED [None]
  - ASPARTATE AMINOTRANSFERASE INCREASED [None]
  - HEPATIC FUNCTION ABNORMAL [None]
